FAERS Safety Report 7412238-X (Version None)
Quarter: 2011Q2

REPORT INFORMATION
  Report Type: 
  Country: None (occurrence: None)
  Receive Date: 20110413
  Receipt Date: 20110407
  Transmission Date: 20111010
  Serious: Yes (Hospitalization)
  Sender: FDA-Public Use
  Company Number: PL-PFIZER INC-2011077702

PATIENT
  Age: 40 Year
  Sex: Male

DRUGS (9)
  1. AMLODIPINE BESYLATE [Suspect]
     Indication: HYPERTENSION
     Dosage: 20 MG, UNK
  2. EPLERENONE [Suspect]
     Indication: HYPERTENSION
     Dosage: 50 MG, UNK
  3. BETAXOLOL [Suspect]
     Indication: HYPERTENSION
     Dosage: 20 MG, UNK
  4. INDAPAMIDE [Suspect]
     Indication: HYPERTENSION
     Dosage: 1.5 MG, UNK
  5. NITRENDIPINE [Suspect]
     Indication: HYPERTENSION
     Dosage: 20 MG, 3X/DAY
  6. DOXAZOSIN MESYLATE [Suspect]
     Indication: HYPERTENSION
     Dosage: 8 MG, 1X/DAY
  7. BISOPROLOL [Suspect]
     Indication: HYPERTENSION
     Dosage: 10 MG, UNK
  8. QUINAPRIL HCL [Suspect]
     Indication: HYPERTENSION
     Dosage: 40 MG, 2X/DAY
  9. TELMISARTAN [Suspect]
     Indication: HYPERTENSION
     Dosage: 80 MG, UNK

REACTIONS (2)
  - DRUG INEFFECTIVE [None]
  - AORTIC DISSECTION [None]
